FAERS Safety Report 16685437 (Version 1)
Quarter: 2019Q3

REPORT INFORMATION
  Report Type: Spontaneous
  Country: US (occurrence: US)
  Receive Date: 20190809
  Receipt Date: 20190809
  Transmission Date: 20191004
  Serious: No
  Sender: FDA-Public Use
  Company Number: US-SA-2019SA212489

PATIENT
  Age: 56 Year
  Sex: Male

DRUGS (5)
  1. METOLAZONE. [Concomitant]
     Active Substance: METOLAZONE
     Dosage: UNK
     Route: 065
  2. ANORO ELLIPTA [Concomitant]
     Active Substance: UMECLIDINIUM BROMIDE\VILANTEROL TRIFENATATE
     Route: 065
  3. LASIX [Suspect]
     Active Substance: FUROSEMIDE
     Indication: FLUID RETENTION
     Dosage: 120 MG, QD
     Route: 048
  4. LASIX [Suspect]
     Active Substance: FUROSEMIDE
     Dosage: UNK, 40 OR 80 MG INJECTION INTRAVENOUS
     Route: 042
  5. PRALUENT [Suspect]
     Active Substance: ALIROCUMAB
     Indication: BLOOD CHOLESTEROL ABNORMAL
     Dosage: UNK
     Route: 065

REACTIONS (5)
  - Fluid retention [Unknown]
  - White blood cell count increased [Unknown]
  - Feeling hot [Unknown]
  - Weight increased [Unknown]
  - Therapeutic product effect incomplete [Unknown]
